FAERS Safety Report 4494961-2 (Version None)
Quarter: 2004Q4

REPORT INFORMATION
  Report Type: 
  Country: None (occurrence: None)
  Receive Date: 20041105
  Receipt Date: 20041105
  Transmission Date: 20050328
  Serious: Yes (Life-Threatening, Hospitalization)
  Sender: FDA-Public Use
  Company Number: None

PATIENT
  Sex: Female
  Weight: 57 kg

DRUGS (6)
  1. TENOFOVIR [Suspect]
     Indication: HIV INFECTION
     Dosage: 300MG    QD   ORAL
     Route: 048
     Dates: start: 20021201, end: 20040802
  2. ELAVIL [Concomitant]
  3. KALETRA [Concomitant]
  4. SUSTIVA [Concomitant]
  5. NAPROXEN [Concomitant]
  6. HYDROCODONE [Concomitant]

REACTIONS (2)
  - CHOLECYSTITIS ACUTE [None]
  - FANCONI SYNDROME ACQUIRED [None]
